FAERS Safety Report 4630850-8 (Version None)
Quarter: 2005Q2

REPORT INFORMATION
  Report Type: 
  Country: None (occurrence: None)
  Receive Date: 20050405
  Receipt Date: 20050405
  Transmission Date: 20051028
  Serious: Yes (Hospitalization)
  Sender: FDA-Public Use
  Company Number: None

PATIENT
  Sex: Female
  Weight: 57.6068 kg

DRUGS (11)
  1. TARCEVA [Suspect]
     Indication: PANCREATIC CARCINOMA
     Dosage: 800 MG PO Q WEEK
     Route: 048
     Dates: start: 20050330, end: 20050331
  2. ALIMTA [Suspect]
     Indication: PANCREATIC CARCINOMA
     Dosage: 500 MG/M2 IV Q 3 WEEKS
     Route: 042
     Dates: start: 20050329
  3. OXYCONTIN [Concomitant]
  4. FENTANYL [Concomitant]
  5. LEVOXYL [Concomitant]
  6. LASIX [Concomitant]
  7. MULTI-VITAMIN [Concomitant]
  8. VITAMIN C [Concomitant]
  9. PANCREATIC ENZYMES [Concomitant]
  10. DECADRON [Concomitant]
  11. B12 [Concomitant]

REACTIONS (4)
  - ASTHENIA [None]
  - HYPERHIDROSIS [None]
  - INTENTION TREMOR [None]
  - MEDICATION ERROR [None]
